FAERS Safety Report 13265523 (Version 1)
Quarter: 2017Q1

REPORT INFORMATION
  Report Type: Spontaneous
  Country: FR (occurrence: FR)
  Receive Date: 20170223
  Receipt Date: 20170223
  Transmission Date: 20170428
  Serious: Yes (Hospitalization)
  Sender: FDA-Public Use
  Company Number: FR-BAYER-2017-032731

PATIENT
  Age: 21 Year
  Sex: Female

DRUGS (4)
  1. QLAIRA [Suspect]
     Active Substance: DIENOGEST\ESTRADIOL VALERATE
     Indication: ORAL CONTRACEPTION
     Dosage: 1 DF, QD
     Route: 048
     Dates: start: 20161101, end: 20161127
  2. LEVOTHYROX [Concomitant]
     Active Substance: LEVOTHYROXINE
     Dosage: 25 ?G, QD
     Dates: start: 20130511
  3. PARACETAMOL [Suspect]
     Active Substance: ACETAMINOPHEN
     Indication: RHINITIS
     Dosage: UNK
     Route: 048
     Dates: start: 20161112, end: 20161116
  4. OXOMEMAZINE [Suspect]
     Active Substance: OXOMEMAZINE
     Indication: RHINITIS
     Dosage: UNK
     Route: 048
     Dates: start: 20161112, end: 20161119

REACTIONS (1)
  - Stevens-Johnson syndrome [Recovered/Resolved with Sequelae]

NARRATIVE: CASE EVENT DATE: 20161125
